FAERS Safety Report 7599603-5 (Version None)
Quarter: 2011Q3

REPORT INFORMATION
  Report Type: 
  Country: None (occurrence: None)
  Receive Date: 20110711
  Receipt Date: 20110120
  Transmission Date: 20111222
  Serious: Yes (Other)
  Sender: FDA-Public Use
  Company Number: US-BAYER-201039461NA

PATIENT
  Age: 43 Year
  Sex: Male

DRUGS (15)
  1. TRASYLOL [Suspect]
     Indication: AORTIC ANEURYSM REPAIR
  2. ALBUMIN (HUMAN) [Concomitant]
     Dosage: 500 ML, ONCE
     Route: 042
     Dates: start: 20060503
  3. PROPOFOL [Concomitant]
     Dosage: UNK
     Route: 042
     Dates: start: 20060503, end: 20060503
  4. HYDRALAZINE HCL [Concomitant]
     Indication: PRODUCT USED FOR UNKNOWN INDICATION
     Dosage: 25 MG, BID
     Route: 048
     Dates: start: 20020812
  5. CLONIDINE [Concomitant]
     Indication: PRODUCT USED FOR UNKNOWN INDICATION
     Dosage: 0.2 MG, BID
     Route: 048
     Dates: start: 20031215
  6. ETOMIDATE [Concomitant]
     Dosage: UNK
     Route: 042
     Dates: start: 20060503, end: 20060503
  7. HEPARIN [Concomitant]
     Dosage: UNK
     Route: 042
     Dates: start: 20060503
  8. SPIRONOLACTONE [Concomitant]
     Indication: PRODUCT USED FOR UNKNOWN INDICATION
     Dosage: 50 MG, BID
     Route: 048
     Dates: start: 20020816
  9. TRASYLOL [Suspect]
     Indication: CORONARY ARTERY BYPASS
  10. VANCOMYCIN [Concomitant]
     Dosage: 1 GRAM
     Route: 042
     Dates: start: 20060503, end: 20060503
  11. FENTANYL [Concomitant]
     Dosage: UNK
     Route: 042
     Dates: start: 20060503, end: 20060503
  12. PROCARDIA XL [Concomitant]
     Indication: PRODUCT USED FOR UNKNOWN INDICATION
     Dosage: 60 MG, QD
     Route: 048
     Dates: start: 20020812
  13. TOPROL-XL [Concomitant]
     Indication: PRODUCT USED FOR UNKNOWN INDICATION
     Dosage: 50 MG, QD
     Route: 048
     Dates: start: 20060311
  14. POTASSIUM CHLORIDE [Concomitant]
     Dosage: UNK
     Route: 042
     Dates: start: 20060503
  15. RED BLOOD CELLS [Concomitant]
     Dosage: 2 U, ONCE
     Route: 042
     Dates: start: 20060503

REACTIONS (14)
  - RENAL INJURY [None]
  - INJURY [None]
  - DISABILITY [None]
  - FEAR [None]
  - ANXIETY [None]
  - EMOTIONAL DISTRESS [None]
  - NERVOUSNESS [None]
  - ANHEDONIA [None]
  - MULTI-ORGAN FAILURE [None]
  - FEAR OF DEATH [None]
  - RENAL FAILURE [None]
  - UNEVALUABLE EVENT [None]
  - PAIN [None]
  - DEPRESSION [None]
